FAERS Safety Report 5854106-0 (Version None)
Quarter: 2008Q3

REPORT INFORMATION
  Report Type: 
  Country: None (occurrence: None)
  Receive Date: 20080822
  Receipt Date: 20080819
  Transmission Date: 20090109
  Serious: Yes (Hospitalization, Disabling)
  Sender: FDA-Public Use
  Company Number: US-KINGPHARMUSA00001-K200800758

PATIENT

DRUGS (14)
  1. ALTACE [Suspect]
     Dosage: 5 MG, QD
     Route: 048
     Dates: start: 20080505, end: 20080524
  2. SPIRO COMP. [Concomitant]
  3. DECORTIN H [Concomitant]
     Dosage: 40 MG, UNK
  4. CIPROFLOXACIN [Concomitant]
  5. COTRIM FORTE EU RHO [Concomitant]
  6. DIFLUCAN [Concomitant]
  7. FRUBIASE CALCIUM                   /00108001/ [Concomitant]
  8. FOLCUR [Concomitant]
  9. VALCYTE [Concomitant]
  10. PANTOZOL                           /01263202/ [Concomitant]
     Dosage: 40 UNK, UNK
  11. LEVOTHYROXINE SODIUM [Concomitant]
  12. KALINOR                            /00031402/ [Concomitant]
  13. VITAMIN B12                        /00056201/ [Concomitant]
  14. URSO FALK [Concomitant]
     Dosage: 1000 MG, UNK

REACTIONS (1)
  - MUSCLE HAEMORRHAGE [None]
